FAERS Safety Report 24164786 (Version 1)
Quarter: 2024Q3

REPORT INFORMATION
  Report Type: Spontaneous
  Country: US (occurrence: US)
  Receive Date: 20240801
  Receipt Date: 20240801
  Transmission Date: 20241016
  Serious: Yes (Hospitalization, Other)
  Sender: DR REDDYS
  Company Number: US-DRL-USA-LIT/USA/24/0011113

PATIENT
  Age: 28 Year
  Sex: Male

DRUGS (10)
  1. FLUCONAZOLE [Suspect]
     Active Substance: FLUCONAZOLE
     Indication: Meningitis cryptococcal
  2. FLUCONAZOLE [Suspect]
     Active Substance: FLUCONAZOLE
  3. EXCEDRIN [Concomitant]
     Active Substance: ACETAMINOPHEN\ASPIRIN\CAFFEINE
     Indication: Meningitis cryptococcal
  4. BIKTARVY [Concomitant]
     Active Substance: BICTEGRAVIR SODIUM\EMTRICITABINE\TENOFOVIR ALAFENAMIDE FUMARATE
     Indication: Meningitis cryptococcal
  5. DILAUDID [Concomitant]
     Active Substance: HYDROMORPHONE HYDROCHLORIDE
     Indication: Headache
     Dosage: 1MG Q4H
     Route: 042
  6. DILAUDID [Concomitant]
     Active Substance: HYDROMORPHONE HYDROCHLORIDE
     Dosage: PO DILAUDID
  7. OXYCODONE [Concomitant]
     Active Substance: OXYCODONE
     Indication: Meningitis cryptococcal
     Dosage: 5MG Q6H
     Route: 048
  8. OXYCODONE [Concomitant]
     Active Substance: OXYCODONE
     Dosage: 5MG Q6H
     Route: 048
  9. IBUPROFEN [Concomitant]
     Active Substance: IBUPROFEN
     Indication: Headache
     Dosage: 1MG Q4H
  10. IBUPROFEN [Concomitant]
     Active Substance: IBUPROFEN
     Dosage: PO DILAUDID

REACTIONS (2)
  - Drug ineffective [Unknown]
  - Immune reconstitution inflammatory syndrome [Unknown]
